FAERS Safety Report 19506470 (Version 6)
Quarter: 2021Q4

REPORT INFORMATION
  Report Type: Report from Study
  Country: US (occurrence: US)
  Receive Date: 20210708
  Receipt Date: 20211104
  Transmission Date: 20220303
  Serious: No
  Sender: FDA-Public Use
  Company Number: NVSC2021US143342

PATIENT
  Sex: Female

DRUGS (3)
  1. ENTRESTO [Suspect]
     Active Substance: SACUBITRIL\VALSARTAN
     Indication: Product used for unknown indication
     Dosage: UNK
     Route: 065
  2. ENTRESTO [Suspect]
     Active Substance: SACUBITRIL\VALSARTAN
     Dosage: UNK
     Route: 065
     Dates: start: 202105
  3. ENTRESTO [Suspect]
     Active Substance: SACUBITRIL\VALSARTAN
     Dosage: 100 MG (SACUBITRIL: 49 MG AND VALSARTAN: 51 MG), BID
     Route: 048

REACTIONS (6)
  - Road traffic accident [Recovering/Resolving]
  - Pain [Unknown]
  - Mobility decreased [Unknown]
  - Blood pressure fluctuation [Unknown]
  - Cough [Unknown]
  - Product administration error [Unknown]
